FAERS Safety Report 11424402 (Version 2)
Quarter: 2015Q3

REPORT INFORMATION
  Report Type: Spontaneous
  Country: US (occurrence: US)
  Receive Date: 20150827
  Receipt Date: 20150827
  Transmission Date: 20151125
  Serious: No
  Sender: FDA-Public Use
  Company Number: US-SA-2014SA073732

PATIENT
  Age: 69 Year
  Sex: Female

DRUGS (5)
  1. MULTAQ [Suspect]
     Active Substance: DRONEDARONE
     Indication: HEART RATE IRREGULAR
     Route: 065
     Dates: start: 201305, end: 201406
  2. LEVOTHYROXINE. [Interacting]
     Active Substance: LEVOTHYROXINE
     Indication: HYPOTHYROIDISM
     Route: 065
  3. MULTAQ [Interacting]
     Active Substance: DRONEDARONE
     Indication: HEART RATE IRREGULAR
     Route: 065
     Dates: end: 201407
  4. XARELTO [Concomitant]
     Active Substance: RIVAROXABAN
     Indication: ATRIAL FIBRILLATION
     Dates: start: 201305
  5. LOSARTAN. [Concomitant]
     Active Substance: LOSARTAN
     Indication: HYPERTENSION

REACTIONS (4)
  - Thyroid function test abnormal [Recovered/Resolved]
  - Fatigue [Recovered/Resolved]
  - Drug interaction [Unknown]
  - Rash [Recovered/Resolved]

NARRATIVE: CASE EVENT DATE: 201305
